FAERS Safety Report 9387305 (Version 1)
Quarter: 2013Q3

REPORT INFORMATION
  Report Type: Spontaneous
  Country: US (occurrence: None)
  Receive Date: 20130703
  Receipt Date: 20130703
  Transmission Date: 20140515
  Serious: No
  Sender: FDA-Public Use
  Company Number: None

PATIENT
  Age: 49 Year
  Sex: Female
  Weight: 90.27 kg

DRUGS (2)
  1. PAROXETINE HCL [Suspect]
     Indication: DEPRESSION
     Dates: start: 201303
  2. PAROXETINE HCL [Suspect]
     Indication: GENERALISED ANXIETY DISORDER
     Dates: start: 201303

REACTIONS (2)
  - Product substitution issue [None]
  - Drug ineffective [None]
